FAERS Safety Report 19093254 (Version 3)
Quarter: 2021Q2

REPORT INFORMATION
  Report Type: Report from Study
  Country: US (occurrence: US)
  Receive Date: 20210405
  Receipt Date: 20210521
  Transmission Date: 20210717
  Serious: Yes (Hospitalization, Other)
  Sender: FDA-Public Use
  Company Number: US-TAKEDA-2021TUS020687

PATIENT
  Age: 5 Year
  Sex: Male

DRUGS (12)
  1. TEDUGLUTIDE [Suspect]
     Active Substance: TEDUGLUTIDE
     Indication: SHORT-BOWEL SYNDROME
     Dosage: 0.6 MILLIGRAM, QD
     Route: 058
     Dates: start: 20210216
  2. TEDUGLUTIDE [Suspect]
     Active Substance: TEDUGLUTIDE
     Dosage: 0.0600 UNK
     Route: 065
     Dates: start: 20210216, end: 20210511
  3. TEDUGLUTIDE [Suspect]
     Active Substance: TEDUGLUTIDE
     Indication: SHORT-BOWEL SYNDROME
     Dosage: 0.6 MILLIGRAM, QD
     Route: 058
     Dates: start: 20210216
  4. TEDUGLUTIDE [Suspect]
     Active Substance: TEDUGLUTIDE
     Indication: SHORT-BOWEL SYNDROME
     Dosage: 0.6 MILLIGRAM, QD
     Route: 058
     Dates: start: 20210216
  5. TEDUGLUTIDE [Suspect]
     Active Substance: TEDUGLUTIDE
     Dosage: 0.6 MILLIGRAM, QD
     Route: 058
     Dates: start: 20210216, end: 20210413
  6. TEDUGLUTIDE [Suspect]
     Active Substance: TEDUGLUTIDE
     Dosage: 0.6 MILLIGRAM, QD
     Route: 058
     Dates: start: 20210216, end: 20210413
  7. TEDUGLUTIDE [Suspect]
     Active Substance: TEDUGLUTIDE
     Dosage: 0.6 MILLIGRAM, QD
     Route: 058
     Dates: start: 20210216, end: 20210413
  8. TEDUGLUTIDE [Suspect]
     Active Substance: TEDUGLUTIDE
     Dosage: 0.0600 UNK
     Route: 065
     Dates: start: 20210216, end: 20210511
  9. TEDUGLUTIDE [Suspect]
     Active Substance: TEDUGLUTIDE
     Indication: SHORT-BOWEL SYNDROME
     Dosage: 0.6 MILLIGRAM, QD
     Route: 058
     Dates: start: 20210216
  10. TEDUGLUTIDE [Suspect]
     Active Substance: TEDUGLUTIDE
     Dosage: 0.0600 UNK
     Route: 065
     Dates: start: 20210216, end: 20210511
  11. TEDUGLUTIDE [Suspect]
     Active Substance: TEDUGLUTIDE
     Dosage: 0.6 MILLIGRAM, QD
     Route: 058
     Dates: start: 20210216, end: 20210413
  12. TEDUGLUTIDE [Suspect]
     Active Substance: TEDUGLUTIDE
     Dosage: 0.0600 UNK
     Route: 065
     Dates: start: 20210216, end: 20210511

REACTIONS (5)
  - Pyrexia [Unknown]
  - Colitis [Unknown]
  - Enema administration [Unknown]
  - Abdominal distension [Unknown]
  - Gastrointestinal decompression [Unknown]

NARRATIVE: CASE EVENT DATE: 20210511
